FAERS Safety Report 9399277 (Version 1)
Quarter: 2013Q3

REPORT INFORMATION
  Report Type: Spontaneous
  Country: US (occurrence: US)
  Receive Date: 20130715
  Receipt Date: 20130715
  Transmission Date: 20140515
  Serious: No
  Sender: FDA-Public Use
  Company Number: US-PFIZER INC-2013204793

PATIENT
  Age: 64 Year
  Sex: Male
  Weight: 117.1 kg

DRUGS (8)
  1. NEURONTIN [Suspect]
     Indication: DIABETIC NEUROPATHY
     Dosage: 1600 MG, UNK
     Dates: start: 1998
  2. DIGOXIN [Concomitant]
     Dosage: UNK
  3. LEVOTHYROXINE [Concomitant]
     Dosage: UNK
  4. METFORMIN [Concomitant]
     Dosage: UNK
  5. SIMVASTATIN [Concomitant]
     Dosage: UNK
  6. LOSARTAN [Concomitant]
     Dosage: UNK
  7. GLIPIZIDE [Concomitant]
     Dosage: UNK
  8. GEMFIBROZIL [Concomitant]
     Dosage: UNK

REACTIONS (2)
  - Off label use [Unknown]
  - Drug ineffective for unapproved indication [Unknown]
